FAERS Safety Report 13331173 (Version 3)
Quarter: 2017Q2

REPORT INFORMATION
  Report Type: Spontaneous
  Country: MY (occurrence: MY)
  Receive Date: 20170313
  Receipt Date: 20170621
  Transmission Date: 20170830
  Serious: Yes (Death, Life-Threatening, Hospitalization, Other)
  Sender: FDA-Public Use
  Company Number: MY-TOLMAR, INC.-2017MY002478

PATIENT
  Age: 60 Year
  Sex: Male

DRUGS (2)
  1. CASODEX [Concomitant]
     Active Substance: BICALUTAMIDE
  2. ELIGARD [Suspect]
     Active Substance: LEUPROLIDE ACETATE
     Indication: PROSTATE CANCER
     Dosage: 22.5 MG, Q3MONTHS (CYCLIC)
     Route: 058
     Dates: start: 20151007, end: 20170220

REACTIONS (5)
  - Ileus paralytic [Unknown]
  - Malignant neoplasm progression [Fatal]
  - Contusion [Fatal]
  - Disseminated intravascular coagulation [Not Recovered/Not Resolved]
  - Haemorrhagic diathesis [Not Recovered/Not Resolved]

NARRATIVE: CASE EVENT DATE: 20170220
